FAERS Safety Report 9580778 (Version 1)
Quarter: 2013Q4

REPORT INFORMATION
  Report Type: Spontaneous
  Country: US (occurrence: None)
  Receive Date: 20131001
  Receipt Date: 20131001
  Transmission Date: 20140711
  Serious: Yes (Other)
  Sender: FDA-Public Use
  Company Number: None

PATIENT
  Age: 52 Year
  Sex: Female
  Weight: 83.92 kg

DRUGS (1)
  1. LEVOFLOXACIN [Suspect]
     Indication: SINUSITIS
     Dosage: 1 TAB
     Route: 048
     Dates: start: 20130415, end: 20131024

REACTIONS (7)
  - Pain in extremity [None]
  - Arthralgia [None]
  - Neuralgia [None]
  - Tendon pain [None]
  - Gait disturbance [None]
  - Arthralgia [None]
  - Constipation [None]
